FAERS Safety Report 7945709-8 (Version None)
Quarter: 2011Q4

REPORT INFORMATION
  Report Type: 
  Country: None (occurrence: None)
  Receive Date: 20111129
  Receipt Date: 20110331
  Transmission Date: 20120403
  Serious: No
  Sender: FDA-Public Use
  Company Number: US-MYLANLABS-2011S1004134

PATIENT
  Age: 62 Year
  Sex: Female

DRUGS (7)
  1. CLONAZEPAM [Suspect]
     Indication: ANXIETY
     Dates: start: 20080201
  2. EVISTA [Concomitant]
  3. ASPIRIN [Concomitant]
  4. LEVOTHYROXINE SODIUM [Concomitant]
  5. TRIAMTERENE AND HYDROCHLOROTHIAZIDE [Concomitant]
     Dosage: HCTZ 25MG/TRIAMTERENE 37.5MG
  6. LISINOPRIL [Concomitant]
  7. SIMVASTATIN [Concomitant]

REACTIONS (2)
  - CLUMSINESS [None]
  - FATIGUE [None]
